FAERS Safety Report 10101811 (Version 2)
Quarter: 2014Q2

REPORT INFORMATION
  Report Type: Spontaneous
  Country: US (occurrence: US)
  Receive Date: 20140424
  Receipt Date: 20140603
  Transmission Date: 20141212
  Serious: Yes (Other)
  Sender: FDA-Public Use
  Company Number: US-FRI-1000066650

PATIENT
  Age: 55 Year
  Sex: Female

DRUGS (13)
  1. NAMENDA XR [Suspect]
     Indication: COGNITIVE DISORDER
     Dosage: 7 MG
     Route: 048
     Dates: start: 201404, end: 201404
  2. NAMENDA XR [Suspect]
     Indication: COGNITIVE DISORDER
     Dosage: 7 MG
     Route: 048
     Dates: start: 201404, end: 2014
  3. NAMENDA XR [Suspect]
     Dosage: 14 MG
     Route: 048
     Dates: start: 2014, end: 2014
  4. NAMENDA XR [Suspect]
     Dosage: 21 MG
     Route: 048
     Dates: start: 2014, end: 201405
  5. NAMENDA XR [Suspect]
     Indication: COGNITIVE DISORDER
     Dosage: 28 MG
     Route: 048
     Dates: start: 201405, end: 20140528
  6. NAMENDA XR [Suspect]
     Dosage: 14 MG
     Route: 048
     Dates: start: 20140529
  7. NUVIGIL [Suspect]
     Indication: MENTAL IMPAIRMENT
     Dosage: 37.5
     Dates: end: 201404
  8. NUVIGIL [Suspect]
     Dates: start: 201404, end: 201404
  9. NUVIGIL [Suspect]
     Dosage: 37.5 MG
     Dates: start: 201404, end: 201404
  10. KLONOPIN [Concomitant]
     Indication: ANXIETY
     Dosage: AS NEEDED
  11. EXELON [Concomitant]
  12. LAMOTRIGINE [Concomitant]
  13. BUPROPION [Concomitant]
     Indication: DEPRESSION

REACTIONS (6)
  - Mental impairment [Recovered/Resolved]
  - Tachyphrenia [Recovered/Resolved]
  - Thinking abnormal [Not Recovered/Not Resolved]
  - Restlessness [Not Recovered/Not Resolved]
  - Off label use [Not Recovered/Not Resolved]
  - Insomnia [Not Recovered/Not Resolved]
